FAERS Safety Report 7179523-0 (Version None)
Quarter: 2010Q4

REPORT INFORMATION
  Report Type: 
  Country: None (occurrence: None)
  Receive Date: 20101221
  Receipt Date: 20101210
  Transmission Date: 20110411
  Serious: Yes (Hospitalization, Other)
  Sender: FDA-Public Use
  Company Number: FR-BAXTER-2010BH026759

PATIENT
  Age: 63 Year
  Sex: Female

DRUGS (3)
  1. GAMMAGARD LIQUID [Suspect]
     Indication: PRODUCT USED FOR UNKNOWN INDICATION
     Route: 042
     Dates: start: 20101008, end: 20101008
  2. GAMMAGARD LIQUID [Suspect]
     Route: 042
     Dates: start: 20101009, end: 20101009
  3. GAMMAGARD LIQUID [Suspect]
     Route: 042
     Dates: start: 20101009, end: 20101009

REACTIONS (14)
  - ASTHENIA [None]
  - BRUDZINSKI'S SIGN [None]
  - HEADACHE [None]
  - HYPERAESTHESIA [None]
  - MENINGITIS ASEPTIC [None]
  - MONOCYTE COUNT INCREASED [None]
  - NAUSEA [None]
  - NEUTROPHIL COUNT INCREASED [None]
  - NUCHAL RIGIDITY [None]
  - PHONOPHOBIA [None]
  - PHOTOPHOBIA [None]
  - PYREXIA [None]
  - VOMITING [None]
  - WHITE BLOOD CELL COUNT INCREASED [None]
